FAERS Safety Report 20729653 (Version 2)
Quarter: 2022Q2

REPORT INFORMATION
  Report Type: Spontaneous
  Country: CN (occurrence: None)
  Receive Date: 20220420
  Receipt Date: 20220523
  Transmission Date: 20220720
  Serious: Yes (Other)
  Sender: FDA-Public Use
  Company Number: CN-ROCHE-3073543

PATIENT
  Age: 53 Year
  Sex: Male
  Weight: 80 kg

DRUGS (20)
  1. GAZYVA [Suspect]
     Active Substance: OBINUTUZUMAB
     Indication: Chronic lymphocytic leukaemia
     Route: 042
     Dates: start: 20220115
  2. GAZYVA [Suspect]
     Active Substance: OBINUTUZUMAB
     Indication: Lymphocytic lymphoma
     Route: 042
     Dates: start: 20220321
  3. GAZYVA [Suspect]
     Active Substance: OBINUTUZUMAB
     Route: 042
     Dates: start: 20220221
  4. METHYLPREDNISOLONE [Concomitant]
     Active Substance: METHYLPREDNISOLONE
     Indication: Chronic lymphocytic leukaemia
     Dates: start: 20220212
  5. VENETOCLAX [Concomitant]
     Active Substance: VENETOCLAX
     Indication: Chronic lymphocytic leukaemia
     Dosage: DOSE ESCALATION TO 400 MG/D
     Dates: start: 20220115
  6. VENETOCLAX [Concomitant]
     Active Substance: VENETOCLAX
     Dates: start: 20220212
  7. VENETOCLAX [Concomitant]
     Active Substance: VENETOCLAX
     Dates: start: 20220321
  8. FLUDARABINE [Concomitant]
     Active Substance: FLUDARABINE PHOSPHATE
     Indication: Chronic lymphocytic leukaemia
     Dosage: FCR
     Dates: start: 20211122
  9. CYCLOPHOSPHAMIDE [Concomitant]
     Active Substance: CYCLOPHOSPHAMIDE
     Indication: Chronic lymphocytic leukaemia
     Dosage: FCR
     Dates: start: 20211122
  10. CYCLOPHOSPHAMIDE [Concomitant]
     Active Substance: CYCLOPHOSPHAMIDE
     Dates: start: 20220215
  11. CYCLOPHOSPHAMIDE [Concomitant]
     Active Substance: CYCLOPHOSPHAMIDE
     Dates: start: 20220321
  12. RITUXIMAB [Concomitant]
     Active Substance: RITUXIMAB
     Indication: Chronic lymphocytic leukaemia
     Route: 065
     Dates: start: 20211122
  13. ETOPOSIDE [Concomitant]
     Active Substance: ETOPOSIDE
     Indication: Chronic lymphocytic leukaemia
     Dates: start: 20220215
  14. ETOPOSIDE [Concomitant]
     Active Substance: ETOPOSIDE
     Dates: start: 20220321
  15. EPIRUBICIN [Concomitant]
     Active Substance: EPIRUBICIN
     Indication: Chronic lymphocytic leukaemia
     Dates: start: 20220215
  16. EPIRUBICIN [Concomitant]
     Active Substance: EPIRUBICIN
     Dates: start: 20220321
  17. VINDESINE [Concomitant]
     Active Substance: VINDESINE
     Indication: Chronic lymphocytic leukaemia
     Dates: start: 20220215
  18. VINDESINE [Concomitant]
     Active Substance: VINDESINE
     Dates: start: 20220321
  19. PREDNISONE [Concomitant]
     Active Substance: PREDNISONE
     Indication: Chronic lymphocytic leukaemia
     Dates: start: 20220215
  20. PREDNISONE [Concomitant]
     Active Substance: PREDNISONE
     Dates: start: 20220321

REACTIONS (5)
  - Agranulocytosis [Unknown]
  - Interstitial lung disease [Unknown]
  - Pyrexia [Unknown]
  - Off label use [Unknown]
  - Myelosuppression [Unknown]
